FAERS Safety Report 19993817 (Version 1)
Quarter: 2021Q4

REPORT INFORMATION
  Report Type: Spontaneous
  Country: US (occurrence: US)
  Receive Date: 20211025
  Receipt Date: 20211025
  Transmission Date: 20220303
  Serious: Yes (Other)
  Sender: FDA-Public Use
  Company Number: US-NOVARTISPH-NVSC2021US243052

PATIENT
  Age: 60 Year
  Sex: Male

DRUGS (2)
  1. RANITIDINE [Suspect]
     Active Substance: RANITIDINE
     Indication: Liver disorder
     Dosage: 150 MG, QD
     Route: 065
     Dates: start: 200503, end: 201605
  2. RANITIDINE [Suspect]
     Active Substance: RANITIDINE
     Indication: Liver disorder
     Dosage: 150 MG, QD
     Route: 065
     Dates: start: 200503, end: 201605

REACTIONS (2)
  - Colorectal cancer stage IV [Unknown]
  - Product use in unapproved indication [Unknown]

NARRATIVE: CASE EVENT DATE: 20190501
